FAERS Safety Report 19596735 (Version 6)
Quarter: 2021Q4

REPORT INFORMATION
  Report Type: Report from Study
  Country: CA (occurrence: CA)
  Receive Date: 20210722
  Receipt Date: 20211109
  Transmission Date: 20220303
  Serious: Yes (Hospitalization, Other)
  Sender: FDA-Public Use
  Company Number: CA-BIOVITRUM-2021CA6852

PATIENT
  Age: 3 Month
  Sex: Male
  Weight: 6.37 kg

DRUGS (25)
  1. EMAPALUMAB [Suspect]
     Active Substance: EMAPALUMAB
     Indication: Familial haemophagocytic lymphohistiocytosis
     Route: 041
     Dates: start: 20210605, end: 20210605
  2. EMAPALUMAB [Suspect]
     Active Substance: EMAPALUMAB
     Route: 041
     Dates: start: 20210608, end: 20210608
  3. EMAPALUMAB [Suspect]
     Active Substance: EMAPALUMAB
     Route: 041
     Dates: start: 20210613, end: 20210613
  4. EMAPALUMAB [Suspect]
     Active Substance: EMAPALUMAB
     Route: 041
     Dates: start: 20210616, end: 20210616
  5. EMAPALUMAB [Suspect]
     Active Substance: EMAPALUMAB
     Route: 041
     Dates: start: 20210618, end: 20210618
  6. EMAPALUMAB [Suspect]
     Active Substance: EMAPALUMAB
     Route: 041
     Dates: start: 20210622, end: 20210622
  7. EMAPALUMAB [Suspect]
     Active Substance: EMAPALUMAB
     Route: 041
     Dates: start: 20210625, end: 20210625
  8. EMAPALUMAB [Suspect]
     Active Substance: EMAPALUMAB
     Route: 041
     Dates: start: 20210629, end: 20210629
  9. EMAPALUMAB [Suspect]
     Active Substance: EMAPALUMAB
     Route: 041
     Dates: start: 20210702, end: 20210702
  10. EMAPALUMAB [Suspect]
     Active Substance: EMAPALUMAB
     Route: 041
     Dates: start: 20210706, end: 20210706
  11. EMAPALUMAB [Suspect]
     Active Substance: EMAPALUMAB
     Route: 041
     Dates: start: 20210709, end: 20210709
  12. EMAPALUMAB [Suspect]
     Active Substance: EMAPALUMAB
     Route: 041
     Dates: start: 20210714, end: 20210714
  13. EMAPALUMAB [Suspect]
     Active Substance: EMAPALUMAB
     Route: 041
     Dates: start: 20210726, end: 20210726
  14. EMAPALUMAB [Suspect]
     Active Substance: EMAPALUMAB
     Route: 041
     Dates: start: 20210805, end: 20210805
  15. EMAPALUMAB [Suspect]
     Active Substance: EMAPALUMAB
     Route: 041
     Dates: start: 20210812, end: 20210812
  16. EMAPALUMAB [Suspect]
     Active Substance: EMAPALUMAB
     Route: 041
     Dates: start: 20210816, end: 20210816
  17. CEFAZOLIN [Concomitant]
     Active Substance: CEFAZOLIN
     Route: 042
  18. ACYCLOVIR [Concomitant]
     Active Substance: ACYCLOVIR
     Route: 048
  19. CLOTRIMAZOLE [Concomitant]
     Active Substance: CLOTRIMAZOLE
     Route: 061
  20. DEXAMETHASONE [Concomitant]
     Active Substance: DEXAMETHASONE
     Dosage: 1 MG/ML (0.38 MG)?28 DOSES
     Route: 048
  21. ENOXAPARIN [Concomitant]
     Active Substance: ENOXAPARIN
     Dosage: 100 MG/ML
     Route: 058
  22. FLUCONAZOLE [Concomitant]
     Active Substance: FLUCONAZOLE
     Dosage: 10 MG/ML
     Route: 048
  23. LANSOPRAZOLE [Concomitant]
     Active Substance: LANSOPRAZOLE
     Dosage: DELAYED RELEASE DISINTEGRATING TABLETS?30 DAYS
     Route: 048
  24. SEPTRA [Concomitant]
     Active Substance: SULFAMETHOXAZOLE\TRIMETHOPRIM
     Dosage: 100-20 MG ?1.5 TABLET (30 MG TRIMETHOPRIM)?ONCE DAILY ON FRIDAY SATURDAY AND SUNDAY
  25. ZINC OXIDE [Concomitant]
     Active Substance: ZINC OXIDE
     Dosage: 4 PERCENT ?AS NEEDED
     Route: 061

REACTIONS (2)
  - Respiratory distress [Recovering/Resolving]
  - Cytomegalovirus infection [Recovering/Resolving]

NARRATIVE: CASE EVENT DATE: 20210713
